FAERS Safety Report 23608213 (Version 1)
Quarter: 2024Q1

REPORT INFORMATION
  Report Type: Spontaneous
  Country: CA (occurrence: CA)
  Receive Date: 20240307
  Receipt Date: 20240307
  Transmission Date: 20240410
  Serious: Yes (Other)
  Sender: FDA-Public Use
  Company Number: CA-VIIV HEALTHCARE LIMITED-CA2023079136

PATIENT
  Age: 53 Year
  Sex: Male

DRUGS (10)
  1. RILPIVIRINE [Suspect]
     Active Substance: RILPIVIRINE
     Indication: HIV infection
     Dosage: UNK UNK, Q2M (600MG/3ML) CABOTEGRAVIR INJECTION AND (900MG/3ML) RILPIVIRINE INJECTION
     Route: 030
     Dates: start: 20230530
  2. RILPIVIRINE [Suspect]
     Active Substance: RILPIVIRINE
     Dosage: UNK, Q2M, INITIATION(1ST + 2ND INJ 3ML(600/900MG) -1 MONTH APART,CONTINUATION INJ^S 2 MONTHS
     Route: 030
     Dates: start: 20230530
  3. RILPIVIRINE [Suspect]
     Active Substance: RILPIVIRINE
     Dosage: UNK, Q2M, INITIATION(1ST + 2ND INJ 3ML(600/900MG) -1 MONTH APART,CONTINUATION INJ^S 2 MONTHS
     Route: 030
     Dates: start: 20230530
  4. RILPIVIRINE [Suspect]
     Active Substance: RILPIVIRINE
     Dosage: UNK, Q2M, INITIATION(1ST + 2ND INJ 3ML(600/900MG) -1 MONTH APART,CONTINUATION INJ^S 2 MONTHS
     Route: 030
  5. RILPIVIRINE [Suspect]
     Active Substance: RILPIVIRINE
     Dosage: UNK UNK, Q2M (CABOTEGRAVIR 600MG/3ML RILPIVIRINE 900MG/3ML)
     Route: 030
  6. CABOTEGRAVIR [Suspect]
     Active Substance: CABOTEGRAVIR
     Indication: HIV infection
     Dosage: UNK UNK, Q2M (600MG/3ML) CABOTEGRAVIR INJECTION AND (900MG/3ML) RILPIVIRINE INJECTION
     Route: 030
     Dates: start: 20230530
  7. CABOTEGRAVIR [Suspect]
     Active Substance: CABOTEGRAVIR
     Dosage: UNK, Q2M, INITIATION(1ST + 2ND INJ 3ML(600/900MG) -1 MONTH APART,CONTINUATION INJ^S 2 MONTHS
     Route: 030
     Dates: start: 20230530
  8. CABOTEGRAVIR [Suspect]
     Active Substance: CABOTEGRAVIR
     Dosage: UNK, Q2M, INITIATION(1ST + 2ND INJ 3ML(600/900MG) -1 MONTH APART,CONTINUATION INJ^S 2 MONTHS
     Route: 030
     Dates: start: 20230530
  9. CABOTEGRAVIR [Suspect]
     Active Substance: CABOTEGRAVIR
     Dosage: UNK, Q2M, INITIATION(1ST + 2ND INJ 3ML(600/900MG) -1 MONTH APART,CONTINUATION INJ^S 2 MONTHS
     Route: 030
  10. CABOTEGRAVIR [Suspect]
     Active Substance: CABOTEGRAVIR
     Dosage: UNK UNK, Q2M (CABOTEGRAVIR 600MG/3ML RILPIVIRINE 900MG/3ML)
     Route: 030

REACTIONS (5)
  - Tendon disorder [Unknown]
  - Injection site pain [Unknown]
  - Injection site infection [Not Recovered/Not Resolved]
  - Injection site erythema [Recovered/Resolved]
  - Injection site swelling [Unknown]

NARRATIVE: CASE EVENT DATE: 20230530
